FAERS Safety Report 5614878-7 (Version None)
Quarter: 2008Q1

REPORT INFORMATION
  Report Type: 
  Country: None (occurrence: None)
  Receive Date: 20080131
  Receipt Date: 20080121
  Transmission Date: 20080703
  Serious: Yes (Disabling)
  Sender: FDA-Public Use
  Company Number: 2008-170465-NL

PATIENT
  Age: 17 Year
  Sex: Female

DRUGS (2)
  1. ETONOGESTREL (BATCH #: 112007/175644) [Suspect]
     Indication: CONTRACEPTION
     Dosage: DF
     Route: 058
     Dates: start: 20070713, end: 20080118
  2. CAFFEINE CITRATE [Concomitant]

REACTIONS (3)
  - DEPRESSED MOOD [None]
  - VITILIGO [None]
  - WEIGHT INCREASED [None]
